FAERS Safety Report 25999409 (Version 1)
Quarter: 2025Q4

REPORT INFORMATION
  Report Type: Spontaneous
  Country: US (occurrence: US)
  Receive Date: 20251105
  Receipt Date: 20251105
  Transmission Date: 20260118
  Serious: No
  Sender: CURRAX PHARMACEUTICALS
  Company Number: US-CURRAX PHARMACEUTICALS LLC-US-2025CUR001423

PATIENT
  Sex: Female

DRUGS (4)
  1. CONTRAVE [Suspect]
     Active Substance: BUPROPION HYDROCHLORIDE\NALTREXONE HYDROCHLORIDE
     Indication: Stressed eating
     Dosage: STRENGTH 8/90 MG, 1 TABLET BY MOUTH ONCE DAILY FOR 1 WEEK
     Route: 048
  2. CONTRAVE [Suspect]
     Active Substance: BUPROPION HYDROCHLORIDE\NALTREXONE HYDROCHLORIDE
     Indication: Food craving
     Dosage: STRENGTH 8/90 MG, 1 TABLET TWICE DAILY FOR 1 WEEK
     Route: 048
  3. CONTRAVE [Suspect]
     Active Substance: BUPROPION HYDROCHLORIDE\NALTREXONE HYDROCHLORIDE
     Dosage: STRENGTH 8/90 MG, TWO TABS IN THE A.M. AND 1 TABLET IN THE P.M. FOR 1 WEEK
     Route: 048
  4. CONTRAVE [Suspect]
     Active Substance: BUPROPION HYDROCHLORIDE\NALTREXONE HYDROCHLORIDE
     Dosage: STRENGTH 8/90 MG, TWO TABS TWICE DAILY THEREAFTER
     Route: 048

REACTIONS (2)
  - Nausea [Unknown]
  - Feeling abnormal [Unknown]
